FAERS Safety Report 9254174 (Version 1)
Quarter: 2013Q2

REPORT INFORMATION
  Report Type: Report from Study
  Country: IN (occurrence: IN)
  Receive Date: 20130425
  Receipt Date: 20130425
  Transmission Date: 20140414
  Serious: Yes (Death, Other)
  Sender: FDA-Public Use
  Company Number: PHHY2013IN039149

PATIENT
  Age: 8 Year
  Sex: Female

DRUGS (1)
  1. ASUNRA [Suspect]
     Indication: THALASSAEMIA
     Dosage: 100 MG, DAILY
     Route: 048
     Dates: end: 20130328

REACTIONS (4)
  - Infection [Fatal]
  - General physical health deterioration [Unknown]
  - Heart rate increased [Unknown]
  - Pyrexia [Unknown]
